FAERS Safety Report 11385622 (Version 1)
Quarter: 2015Q3

REPORT INFORMATION
  Report Type: Spontaneous
  Country: KR (occurrence: KR)
  Receive Date: 20150817
  Receipt Date: 20150817
  Transmission Date: 20151125
  Serious: Yes (Hospitalization)
  Sender: FDA-Public Use
  Company Number: KR-AMGEN-KORCT2015083566

PATIENT
  Age: 56 Year
  Sex: Male
  Weight: 63.3 kg

DRUGS (15)
  1. PROGRAF [Concomitant]
     Active Substance: TACROLIMUS\TACROLIMUS ANHYDROUS
     Dosage: 1 MG, 3 CAP
     Route: 048
     Dates: start: 20130622, end: 20141027
  2. SEPTRIN [Concomitant]
     Active Substance: SULFAMETHOXAZOLE\TRIMETHOPRIM
     Dosage: 480 MG, 2 TAB
     Route: 048
     Dates: start: 20140527, end: 20140901
  3. REGPARA [Suspect]
     Active Substance: CINACALCET HYDROCHLORIDE
     Indication: HYPERPARATHYROIDISM SECONDARY
     Dosage: 25 MG, QD
     Route: 048
     Dates: start: 20140707
  4. MYFORTIC [Concomitant]
     Active Substance: MYCOPHENOLATE SODIUM
     Dosage: 720 MG, UNK
     Route: 048
     Dates: start: 20130617
  5. PLETAAL [Concomitant]
     Active Substance: CILOSTAZOL
     Dosage: 100 MG, UNK
     Route: 048
     Dates: start: 20130910
  6. GLUPA [Concomitant]
     Active Substance: METFORMIN HYDROCHLORIDE
     Dosage: 1 G, UNK
     Route: 048
     Dates: start: 20140519
  7. URINON [Concomitant]
     Dosage: 50 MG, UNK
     Route: 048
     Dates: start: 20140226
  8. YUCLA [Concomitant]
     Dosage: 625 MG, 3 TAB
     Route: 048
     Dates: start: 20140804, end: 20140810
  9. CRESTOR [Concomitant]
     Active Substance: ROSUVASTATIN CALCIUM
     Dosage: 10 MG, UNK
     Route: 048
     Dates: start: 20140426, end: 20150516
  10. APIDRA [Concomitant]
     Active Substance: INSULIN GLULISINE
     Dosage: 300 IU/3ML SOLOSTAR, UNK
     Route: 058
     Dates: start: 20131027, end: 20141222
  11. LANTUS [Concomitant]
     Active Substance: INSULIN GLARGINE
     Dosage: 300IU/3ML SOLOSTAR
     Route: 058
     Dates: start: 20130701, end: 20150202
  12. EASYEF [Concomitant]
     Dosage: 10 ML, UNK
     Route: 061
     Dates: start: 20140711
  13. ASPIRIN. [Concomitant]
     Active Substance: ASPIRIN
     Dosage: 100 MG, UNK
     Route: 048
     Dates: start: 20120201, end: 20141027
  14. SOLONDO [Concomitant]
     Active Substance: PREDNISOLONE
     Dosage: 5 MG, 2 TAB
     Route: 048
     Dates: start: 20140426, end: 20140901
  15. CLEOCIN T [Concomitant]
     Active Substance: CLINDAMYCIN PHOSPHATE
     Dosage: 1 % (30 ML), UNK
     Route: 061
     Dates: start: 20130713

REACTIONS (1)
  - Diabetic ulcer [Recovered/Resolved]

NARRATIVE: CASE EVENT DATE: 20140806
